FAERS Safety Report 9535848 (Version 1)
Quarter: 2013Q1

REPORT INFORMATION
  Report Type: Spontaneous
  Country: US (occurrence: None)
  Receive Date: 20130327
  Receipt Date: 20130327
  Transmission Date: 20140127
  Serious: Yes (Other)
  Sender: FDA-Public Use
  Company Number: 2012000329

PATIENT
  Age: 63 Year
  Sex: Male

DRUGS (1)
  1. SULAR [Suspect]
     Indication: HYPERTENSION
     Dates: start: 2011

REACTIONS (4)
  - Extrasystoles [None]
  - Syncope [None]
  - Chest pain [None]
  - Affective disorder [None]
